FAERS Safety Report 9661502 (Version 2)
Quarter: 2013Q4

REPORT INFORMATION
  Report Type: Spontaneous
  Country: US (occurrence: US)
  Receive Date: 20131031
  Receipt Date: 20131031
  Transmission Date: 20140711
  Serious: No
  Sender: FDA-Public Use
  Company Number: US-PURDUE-USA-2010-0055851

PATIENT
  Sex: Male

DRUGS (3)
  1. OXYCONTIN (NDA 22-272) [Suspect]
     Indication: PAIN
     Dosage: 240 MG, Q12H
  2. NORCO [Concomitant]
     Indication: BREAKTHROUGH PAIN
     Dosage: 20 MG, Q8H
  3. METHADONE [Concomitant]
     Indication: PAIN
     Dosage: 30 MG, DAILY

REACTIONS (8)
  - Nausea [Recovered/Resolved]
  - Hyperhidrosis [Not Recovered/Not Resolved]
  - Vomiting [Not Recovered/Not Resolved]
  - Weight decreased [Recovered/Resolved]
  - Gastrointestinal disorder [Unknown]
  - Pain [Not Recovered/Not Resolved]
  - Medication residue present [Not Recovered/Not Resolved]
  - Headache [Not Recovered/Not Resolved]
